FAERS Safety Report 5214570-7 (Version None)
Quarter: 2007Q1

REPORT INFORMATION
  Report Type: 
  Country: None (occurrence: None)
  Receive Date: 20061113
  Receipt Date: 20060829
  Transmission Date: 20070707
  Serious: Yes (Hospitalization)
  Sender: FDA-Public Use
  Company Number: 2006-BP-10113BP

PATIENT
  Sex: Male

DRUGS (1)
  1. MICARDIS [Suspect]

REACTIONS (1)
  - DIZZINESS [None]
